FAERS Safety Report 16641661 (Version 1)
Quarter: 2019Q3

REPORT INFORMATION
  Report Type: Spontaneous
  Country: US (occurrence: US)
  Receive Date: 20190729
  Receipt Date: 20190729
  Transmission Date: 20191004
  Serious: No
  Sender: FDA-Public Use
  Company Number: US-ASTRAZENECA-2019SF03584

PATIENT
  Sex: Male
  Weight: 79.8 kg

DRUGS (7)
  1. BABY ASPIRIN [Concomitant]
     Active Substance: ASPIRIN
  2. SIMVASTATIN. [Concomitant]
     Active Substance: SIMVASTATIN
  3. METOPROLOL SUCCINATE. [Suspect]
     Active Substance: METOPROLOL SUCCINATE
     Indication: BLOOD PRESSURE MEASUREMENT
     Route: 048
     Dates: start: 2009
  4. PLAVIX [Concomitant]
     Active Substance: CLOPIDOGREL BISULFATE
     Indication: ANTICOAGULANT THERAPY
  5. K-DUR [Concomitant]
     Active Substance: POTASSIUM CHLORIDE
  6. TUDORZA PRESSAIR [Suspect]
     Active Substance: ACLIDINIUM BROMIDE
     Indication: CHRONIC OBSTRUCTIVE PULMONARY DISEASE
     Route: 055
     Dates: start: 201905
  7. LASIX [Concomitant]
     Active Substance: FUROSEMIDE

REACTIONS (3)
  - Device defective [Unknown]
  - Intentional product misuse [Unknown]
  - Movement disorder [Not Recovered/Not Resolved]
